FAERS Safety Report 5723969-1 (Version None)
Quarter: 2008Q2

REPORT INFORMATION
  Report Type: 
  Country: None (occurrence: None)
  Receive Date: 20080428
  Receipt Date: 20080416
  Transmission Date: 20081010
  Serious: Yes (Other)
  Sender: FDA-Public Use
  Company Number: 2008009779

PATIENT
  Sex: Male

DRUGS (1)
  1. VISINE-A [Suspect]
     Indication: DRY EYE
     Dosage: OPHTHALMIC
     Route: 047
     Dates: start: 20080401, end: 20080401

REACTIONS (1)
  - EYE IRRITATION [None]
